FAERS Safety Report 9304864 (Version 1)
Quarter: 2013Q2

REPORT INFORMATION
  Report Type: Spontaneous
  Country: CH (occurrence: CH)
  Receive Date: 20130523
  Receipt Date: 20130523
  Transmission Date: 20140414
  Serious: Yes (Hospitalization)
  Sender: FDA-Public Use
  Company Number: CH-MYLANLABS-2013S1010584

PATIENT
  Age: 14 Year
  Sex: Male

DRUGS (2)
  1. BACLOFEN [Suspect]
     Indication: CEREBRAL PALSY
     Dosage: 300MCG/24H
     Route: 037
  2. BACLOFEN [Suspect]
     Indication: CEREBRAL PALSY
     Dosage: INCREASED STEPWISE TO 300MCG/24H
     Route: 037

REACTIONS (4)
  - Hiatus hernia [Recovered/Resolved]
  - Disease recurrence [Recovered/Resolved]
  - Drooling [Unknown]
  - Gastrooesophageal reflux disease [Unknown]
